FAERS Safety Report 4978505-4 (Version None)
Quarter: 2006Q2

REPORT INFORMATION
  Report Type: 
  Country: None (occurrence: None)
  Receive Date: 20060420
  Receipt Date: 20000621
  Transmission Date: 20061013
  Serious: Yes (Hospitalization)
  Sender: FDA-Public Use
  Company Number: FR-ABBOTT-00P-056-0091155-00

PATIENT
  Age: 62 Year
  Sex: Female

DRUGS (8)
  1. VALPROIC ACID [Suspect]
     Indication: GRAND MAL CONVULSION
     Route: 048
     Dates: start: 19980201, end: 19980601
  2. VALPROIC ACID [Suspect]
     Route: 048
     Dates: start: 19980601, end: 19980701
  3. VALPROIC ACID [Suspect]
     Route: 048
     Dates: start: 19980701, end: 19980801
  4. SIMVASTATIN [Concomitant]
     Route: 048
  5. NIFEDIPINE [Concomitant]
     Route: 048
  6. ACETYLSALICYLATE LYSINE [Concomitant]
     Route: 048
  7. ALDACTAZINE [Concomitant]
     Indication: DRUG USE FOR UNKNOWN INDICATION
     Route: 065
  8. RAUBASINE/ALMITRINE [Concomitant]
     Indication: DRUG USE FOR UNKNOWN INDICATION
     Route: 065

REACTIONS (9)
  - ABNORMAL BEHAVIOUR [None]
  - DEMENTIA [None]
  - DRUG LEVEL INCREASED [None]
  - ELECTROENCEPHALOGRAM ABNORMAL [None]
  - HYPERAMMONAEMIA [None]
  - LABORATORY TEST ABNORMAL [None]
  - MEMORY IMPAIRMENT [None]
  - PARKINSONISM [None]
  - RENAL FAILURE [None]
